FAERS Safety Report 5605861-6 (Version None)
Quarter: 2008Q1

REPORT INFORMATION
  Report Type: 
  Country: None (occurrence: None)
  Receive Date: 20080129
  Receipt Date: 20080121
  Transmission Date: 20080703
  Serious: Yes (Other)
  Sender: FDA-Public Use
  Company Number: PHEH2006US09529

PATIENT
  Age: 75 Year
  Sex: Female

DRUGS (6)
  1. TAMOXIFEN [Concomitant]
     Dosage: UNK QD
  2. FASLODEX [Concomitant]
     Indication: BREAST CANCER METASTATIC
     Dosage: 250 MG MONTHLY
     Route: 030
     Dates: start: 20040123, end: 20060419
  3. AROMASIN [Concomitant]
  4. ZOMETA [Suspect]
     Indication: METASTASES TO BONE
     Dosage: 4 MG EVERY 4 WEEKS
     Dates: start: 20040220
  5. TAXOL [Concomitant]
     Indication: BREAST CANCER METASTATIC
     Dosage: 129 MG, WEEKLY
     Dates: start: 20060712
  6. DECADRON [Concomitant]
     Indication: PROPHYLAXIS
     Dosage: 20MG PRIOR TO TAXOL

REACTIONS (6)
  - CONDITION AGGRAVATED [None]
  - DENTAL CARIES [None]
  - PAIN [None]
  - PULMONARY EMBOLISM [None]
  - TOOTH LOSS [None]
  - TOOTH REPAIR [None]
